FAERS Safety Report 14889724 (Version 1)
Quarter: 2018Q2

REPORT INFORMATION
  Report Type: Other
  Country: US (occurrence: US)
  Receive Date: 20180514
  Receipt Date: 20180514
  Transmission Date: 20180711
  Serious: Yes (Death, Hospitalization)
  Sender: FDA-Public Use
  Company Number: US-VELOXIS PHARMACEUTICALS-2047678

PATIENT
  Age: 47 Year
  Sex: Male

DRUGS (11)
  1. CYCLOPHOSPHAMIDE. [Concomitant]
     Active Substance: CYCLOPHOSPHAMIDE
  2. VINCRISTINE [Concomitant]
     Active Substance: VINCRISTINE
  3. ENVARSUS XR [Suspect]
     Active Substance: TACROLIMUS
     Indication: IMMUNOSUPPRESSANT DRUG THERAPY
     Route: 065
  4. FLUCONAZOLE. [Concomitant]
     Active Substance: FLUCONAZOLE
  5. ACICLOVIR [Concomitant]
     Active Substance: ACYCLOVIR
  6. RITUXIMAB. [Concomitant]
     Active Substance: RITUXIMAB
  7. MYCOPHENOLATE MOFETIL. [Suspect]
     Active Substance: MYCOPHENOLATE MOFETIL
     Route: 065
  8. ATOVAQUONE. [Concomitant]
     Active Substance: ATOVAQUONE
  9. DOXORUBICIN [Concomitant]
     Active Substance: DOXORUBICIN
  10. BASILIXIMAB [Concomitant]
     Active Substance: BASILIXIMAB
  11. PREDNISONE. [Concomitant]
     Active Substance: PREDNISONE

REACTIONS (8)
  - Renal tubular necrosis [Unknown]
  - Pancytopenia [Unknown]
  - Complications of transplanted kidney [Unknown]
  - Diarrhoea [Unknown]
  - Intentional product use issue [Unknown]
  - Mucormycosis [Fatal]
  - Abdominal pain [Unknown]
  - Failure to thrive [Unknown]
